FAERS Safety Report 7630781-5 (Version None)
Quarter: 2011Q3

REPORT INFORMATION
  Report Type: 
  Country: None (occurrence: None)
  Receive Date: 20110722
  Receipt Date: 20110713
  Transmission Date: 20111222
  Serious: Yes (Other)
  Sender: FDA-Public Use
  Company Number: HR-ASTRAZENECA-2011SE42137

PATIENT
  Age: 74 Year
  Sex: Female

DRUGS (3)
  1. NOLVADEX [Suspect]
     Indication: BREAST CANCER
     Route: 048
     Dates: start: 20090101
  2. DIAZEPAM [Concomitant]
     Indication: DEPRESSION
     Route: 048
     Dates: start: 20100101
  3. KETOPROFEN [Concomitant]
     Route: 048
     Dates: start: 20110101

REACTIONS (1)
  - CONTUSION [None]
